FAERS Safety Report 4379018-3 (Version None)
Quarter: 2004Q2

REPORT INFORMATION
  Report Type: 
  Country: None (occurrence: None)
  Receive Date: 20040601
  Receipt Date: 20040325
  Transmission Date: 20050107
  Serious: No
  Sender: FDA-Public Use
  Company Number: WAES 0403USA02375

PATIENT
  Age: 71 Year
  Sex: Female

DRUGS (3)
  1. ZETIA [Suspect]
     Indication: BLOOD CHOLESTEROL INCREASED
     Dosage: 10 MG/DAILY/PO
     Route: 048
     Dates: end: 20040308
  2. LIPITOR [Concomitant]
  3. DIPYRIDAMOLE [Concomitant]

REACTIONS (4)
  - CHEST PAIN [None]
  - EYE DISORDER [None]
  - EYE PAIN [None]
  - HEADACHE [None]
